FAERS Safety Report 7490615-9 (Version None)
Quarter: 2011Q2

REPORT INFORMATION
  Report Type: 
  Country: None (occurrence: None)
  Receive Date: 20110519
  Receipt Date: 20110517
  Transmission Date: 20111010
  Serious: Yes (Hospitalization)
  Sender: FDA-Public Use
  Company Number: US-BRISTOL-MYERS SQUIBB COMPANY-15751399

PATIENT
  Age: 38 Year
  Sex: Male
  Weight: 100 kg

DRUGS (5)
  1. LAMICTAL [Concomitant]
  2. ABILIFY [Suspect]
     Indication: THINKING ABNORMAL
     Route: 048
     Dates: start: 20110401
  3. ABILIFY [Suspect]
     Indication: DEPRESSION
     Route: 048
     Dates: start: 20110401
  4. REMERON [Concomitant]
  5. CELEXA [Concomitant]

REACTIONS (3)
  - ANGER [None]
  - ALCOHOLISM [None]
  - SUICIDAL IDEATION [None]
